FAERS Safety Report 13008654 (Version 1)
Quarter: 2016Q4

REPORT INFORMATION
  Report Type: Spontaneous
  Country: US (occurrence: US)
  Receive Date: 20161208
  Receipt Date: 20161208
  Transmission Date: 20170207
  Serious: No
  Sender: FDA-Public Use
  Company Number: US-PFIZER INC-2016570284

PATIENT
  Age: 56 Year
  Sex: Female

DRUGS (2)
  1. ZITHROMAX [Suspect]
     Active Substance: AZITHROMYCIN DIHYDRATE
     Indication: LUNG INFECTION
     Dosage: UNK
  2. ALBUTEROL /00139501/ [Suspect]
     Active Substance: ALBUTEROL
     Indication: LUNG INFECTION
     Dosage: UNK

REACTIONS (1)
  - Gastrooesophageal reflux disease [Unknown]
